FAERS Safety Report 25526144 (Version 1)
Quarter: 2025Q3

REPORT INFORMATION
  Report Type: Spontaneous
  Country: US (occurrence: US)
  Receive Date: 20250707
  Receipt Date: 20250707
  Transmission Date: 20251021
  Serious: Yes (Hospitalization, Other)
  Sender: SK LIFE SCIENCE
  Company Number: US-SK LIFE SCIENCE, INC-SKPVG-2025-001353

PATIENT

DRUGS (1)
  1. XCOPRI [Suspect]
     Active Substance: CENOBAMATE
     Indication: Product used for unknown indication
     Route: 065
     Dates: start: 2025

REACTIONS (10)
  - Dystonia [Not Recovered/Not Resolved]
  - Writer^s cramp [Not Recovered/Not Resolved]
  - Dyskinesia [Not Recovered/Not Resolved]
  - Muscular weakness [Not Recovered/Not Resolved]
  - Grip strength decreased [Not Recovered/Not Resolved]
  - Facial spasm [Not Recovered/Not Resolved]
  - Drooling [Not Recovered/Not Resolved]
  - Hypoaesthesia [Unknown]
  - Dysarthria [Not Recovered/Not Resolved]
  - Varicella zoster virus infection [Unknown]

NARRATIVE: CASE EVENT DATE: 20250601
